FAERS Safety Report 6852790-6 (Version None)
Quarter: 2010Q3

REPORT INFORMATION
  Report Type: 
  Country: None (occurrence: None)
  Receive Date: 20100717
  Receipt Date: 20071121
  Transmission Date: 20110219
  Serious: No
  Sender: FDA-Public Use
  Company Number: US-PFIZER INC-2007100294

PATIENT
  Sex: Female
  Weight: 118.2 kg

DRUGS (10)
  1. CHANTIX [Suspect]
     Indication: SMOKING CESSATION THERAPY
     Dates: start: 20071115
  2. PIROXICAM [Concomitant]
  3. ZETIA [Concomitant]
  4. BACLOFEN [Concomitant]
  5. DIPHENHYDRAMINE [Concomitant]
  6. LIPITOR [Concomitant]
  7. VERAPAMIL [Concomitant]
  8. ACTOS [Concomitant]
  9. DIOVAN HCT [Concomitant]
  10. NEXIUM [Concomitant]

REACTIONS (3)
  - AGITATION [None]
  - ANXIETY [None]
  - HEART RATE INCREASED [None]
